FAERS Safety Report 20899323 (Version 2)
Quarter: 2022Q2

REPORT INFORMATION
  Report Type: Report from Study
  Country: EG (occurrence: EG)
  Receive Date: 20220601
  Receipt Date: 20220604
  Transmission Date: 20220720
  Serious: Yes (Other)
  Sender: FDA-Public Use
  Company Number: EG-NOVARTISPH-NVSC2022EG123964

PATIENT
  Age: 58 Year
  Sex: Female

DRUGS (2)
  1. COSENTYX [Suspect]
     Active Substance: SECUKINUMAB
     Indication: Psoriatic arthropathy
     Dosage: 1 DOSAGE FORM, QMO (ONE PREFILLED PEN)
     Route: 058
     Dates: start: 202010, end: 202101
  2. COSENTYX [Suspect]
     Active Substance: SECUKINUMAB
     Dosage: UNK (2 PREFILLED PENS AT DAY 0 THEN 1 PREFILLED PEN WEEKLY TWICE DURING THE 1ST MONTH ONLY THEN 1 PR
     Route: 058
     Dates: start: 20211122, end: 20220417

REACTIONS (10)
  - Lung neoplasm malignant [Recovering/Resolving]
  - Head and neck cancer [Recovering/Resolving]
  - Psoriatic arthropathy [Unknown]
  - Skin haemorrhage [Unknown]
  - Skin exfoliation [Unknown]
  - Pelvic neoplasm [Unknown]
  - Bone neoplasm [Unknown]
  - Fatigue [Recovered/Resolved]
  - Mobility decreased [Unknown]
  - Product use issue [Recovered/Resolved]

NARRATIVE: CASE EVENT DATE: 20201201
